FAERS Safety Report 5179290-6 (Version None)
Quarter: 2006Q4

REPORT INFORMATION
  Report Type: 
  Country: None (occurrence: None)
  Receive Date: 20061211
  Receipt Date: 20061127
  Transmission Date: 20070319
  Serious: Yes (Hospitalization)
  Sender: FDA-Public Use
  Company Number: 232993

PATIENT
  Age: 71 Year
  Sex: Female

DRUGS (7)
  1. BEVACIZUMAB(BEVACIZUMAB) PWDR + SOLVENT,INFUSION SOLN, 100MG [Suspect]
     Indication: BREAST CANCER METASTATIC
     Dosage: 700 MG, INTRAVENOUS
     Route: 042
     Dates: start: 20061026, end: 20061116
  2. A I-007(ABI-007) [Suspect]
     Indication: BREAST CANCER METASTATIC
     Dosage: 437 MG, INTRAVENOUS
     Route: 042
     Dates: start: 20061026, end: 20061126
  3. G-CSF (FILGRASTIM) [Concomitant]
  4. METFORMIN HCL [Concomitant]
  5. NPH (INSULIN (SUSPENSION), ISOPHANE) [Concomitant]
  6. PROPACET (ACETAMINOPHEN, PROPOXYPHENE NAPSYLATE) [Concomitant]
  7. SENNOSIDE A+B (SENNOSIDES) [Concomitant]

REACTIONS (8)
  - ARTHRITIS [None]
  - C-REACTIVE PROTEIN INCREASED [None]
  - DYSPNOEA [None]
  - GLYCOSYLATED HAEMOGLOBIN INCREASED [None]
  - OEDEMA PERIPHERAL [None]
  - PAIN IN EXTREMITY [None]
  - PAIN IN JAW [None]
  - PYREXIA [None]
